FAERS Safety Report 23217728 (Version 1)
Quarter: 2023Q4

REPORT INFORMATION
  Report Type: Report from Study
  Country: CA (occurrence: None)
  Receive Date: 20231122
  Receipt Date: 20231122
  Transmission Date: 20240109
  Serious: Yes (Other)
  Sender: FDA-Public Use
  Company Number: CA-ROCHE-3429352

PATIENT
  Sex: Female

DRUGS (1)
  1. FARICIMAB [Suspect]
     Active Substance: FARICIMAB
     Indication: Diabetic retinal oedema
     Route: 050

REACTIONS (6)
  - Blindness [Unknown]
  - Anterior chamber inflammation [Unknown]
  - Anterior chamber cell [Unknown]
  - Eye inflammation [Unknown]
  - Dry eye [Unknown]
  - Photophobia [Unknown]
